FAERS Safety Report 17454184 (Version 3)
Quarter: 2020Q3

REPORT INFORMATION
  Report Type: Spontaneous
  Country: JP (occurrence: JP)
  Receive Date: 20200224
  Receipt Date: 20200811
  Transmission Date: 20201102
  Serious: Yes (Death, Hospitalization)
  Sender: FDA-Public Use
  Company Number: JP-TAKEDA-2020TJP004188

PATIENT
  Age: 8 Decade
  Sex: Male

DRUGS (1)
  1. INISYNC COMBINATION TABLETS [Suspect]
     Active Substance: ALOGLIPTIN BENZOATE\METFORMIN HYDROCHLORIDE
     Indication: DIABETES MELLITUS
     Dosage: 1 DOSAGE FORM
     Route: 048
     Dates: start: 20200206

REACTIONS (3)
  - Ketoacidosis [Recovered/Resolved]
  - Pneumonia aspiration [Fatal]
  - Off label use [Unknown]

NARRATIVE: CASE EVENT DATE: 20200206
